FAERS Safety Report 6475290-4 (Version None)
Quarter: 2009Q4

REPORT INFORMATION
  Report Type: 
  Country: None (occurrence: None)
  Receive Date: 20091204
  Receipt Date: 20090608
  Transmission Date: 20100525
  Serious: Yes (Hospitalization)
  Sender: FDA-Public Use
  Company Number: US-ELI_LILLY_AND_COMPANY-US200904001665

PATIENT
  Sex: Male
  Weight: 78.912 kg

DRUGS (7)
  1. BYETTA [Suspect]
     Indication: TYPE 2 DIABETES MELLITUS
     Dosage: 5 UG, 2/D
     Dates: start: 20070328, end: 20070401
  2. BYETTA [Suspect]
     Dosage: 10 UG, 2/D
     Dates: start: 20070402, end: 20090402
  3. AMITRIPTYLINE [Concomitant]
     Dosage: 100 MG, EACH EVENING
     Dates: start: 20070328
  4. GLIMEPIRIDE [Concomitant]
     Dosage: 8 MG, EACH MORNING
     Dates: start: 20070328
  5. METFORMIN HCL [Concomitant]
     Dosage: 2000 MG, EACH EVENING
     Dates: start: 20070328
  6. SIMVASTATIN [Concomitant]
     Dosage: 80 MG, DAILY (1/D)
     Dates: start: 20070328
  7. ZOLPIDEM [Concomitant]
     Dosage: 10 MG, EACH EVENING
     Dates: start: 20071017

REACTIONS (3)
  - BLOOD GLUCOSE INCREASED [None]
  - PANCREATITIS [None]
  - WEIGHT DECREASED [None]
